FAERS Safety Report 11695349 (Version 3)
Quarter: 2016Q2

REPORT INFORMATION
  Report Type: Report from Study
  Country: CA (occurrence: CA)
  Receive Date: 20151103
  Receipt Date: 20160518
  Transmission Date: 20160815
  Serious: Yes (Hospitalization, Other)
  Sender: FDA-Public Use
  Company Number: CA-ROCHE-1654558

PATIENT
  Age: 76 Year
  Sex: Female

DRUGS (8)
  1. COVERSYL [Concomitant]
     Active Substance: PERINDOPRIL
  2. PREDNISONE. [Concomitant]
     Active Substance: PREDNISONE
  3. ACTEMRA [Suspect]
     Active Substance: TOCILIZUMAB
     Indication: RHEUMATOID ARTHRITIS
     Route: 058
     Dates: start: 201508
  4. METHOTREXATE [Concomitant]
     Active Substance: METHOTREXATE
  5. TYLENOL WITH CODEINE [Concomitant]
     Active Substance: ACETAMINOPHEN\CODEINE PHOSPHATE
     Dosage: AS REQUIRED.
     Route: 065
  6. IBUPROFEN. [Concomitant]
     Active Substance: IBUPROFEN
  7. BISOPROLOL [Concomitant]
     Active Substance: BISOPROLOL
  8. HUMIRA [Concomitant]
     Active Substance: ADALIMUMAB

REACTIONS (5)
  - Cystitis [Unknown]
  - Enteritis infectious [Recovering/Resolving]
  - Bacteraemia [Not Recovered/Not Resolved]
  - Blood pressure decreased [Unknown]
  - Viraemia [Recovering/Resolving]

NARRATIVE: CASE EVENT DATE: 20151019
